FAERS Safety Report 10237019 (Version 9)
Quarter: 2018Q3

REPORT INFORMATION
  Report Type: Report from Study
  Country: US (occurrence: US)
  Receive Date: 20140613
  Receipt Date: 20180820
  Transmission Date: 20181010
  Serious: Yes (Other)
  Sender: FDA-Public Use
  Company Number: US-BAYER-2014-052609

PATIENT
  Age: 69 Year
  Sex: Male
  Weight: 95.69 kg

DRUGS (24)
  1. NEXAVAR [Suspect]
     Active Substance: SORAFENIB
     Indication: THYROID CANCER
     Dosage: 1 TABLET TWICE A DAY TO ALTERNATE WITH 1 TABLET IN THE MORNING AND 2 TABLETS IN THE EVENING
     Route: 048
  2. FUROSEMIDE. [Concomitant]
     Active Substance: FUROSEMIDE
  3. STROVITE ONE [Concomitant]
     Active Substance: MINERALS\VITAMINS
  4. ATORVASTATIN [Concomitant]
     Active Substance: ATORVASTATIN
  5. LOMOTIL [DIPHENOXYLATE HYDROCHLORIDE] [Concomitant]
  6. NEXAVAR [Suspect]
     Active Substance: SORAFENIB
     Indication: THYROID CANCER
     Dosage: UNK
     Route: 048
     Dates: start: 20120116
  7. NEXAVAR [Suspect]
     Active Substance: SORAFENIB
     Indication: THYROID CANCER
     Dosage: 400 MG, BID
     Route: 048
     Dates: start: 20120531
  8. NEXAVAR [Suspect]
     Active Substance: SORAFENIB
     Indication: THYROID CANCER
     Dosage: 1 TABLET TWICE A DAY TO ALTERNATE WITH 1 TABLET IN THE MORNING AND 2 TABLETS IN THE EVENING
     Route: 048
  9. NEXAVAR [Suspect]
     Active Substance: SORAFENIB
     Indication: THYROID CANCER
     Dosage: 1 TABLET TWICE A DAY TO ALTERNATE WITH 1 TABLET IN THE MORNING AND 2 TABLETS IN THE EVENING
     Route: 048
  10. TOPROL XL [Concomitant]
     Active Substance: METOPROLOL SUCCINATE
  11. LISINOPRIL. [Concomitant]
     Active Substance: LISINOPRIL
  12. WARFARIN [Concomitant]
     Active Substance: WARFARIN
  13. NEXAVAR [Suspect]
     Active Substance: SORAFENIB
     Indication: THYROID CANCER
     Dosage: 200 MG BID ALTERNATING WITH 200 IN AM AND 400 MG IN PM
     Route: 048
  14. CARTIA XT [Concomitant]
     Active Substance: DILTIAZEM HYDROCHLORIDE
  15. HYDROXYCHLOROQUINE [Concomitant]
     Active Substance: HYDROXYCHLOROQUINE
  16. LEVOTHYROXINE SODIUM. [Concomitant]
     Active Substance: LEVOTHYROXINE SODIUM
  17. NEXAVAR [Suspect]
     Active Substance: SORAFENIB
     Indication: THYROID CANCER
     Dosage: 1 TABLET TWICE A DAY TO ALTERNATE WITH 1 TABLET IN THE MORNING AND 2 TABLETS IN THE EVENING
     Dates: start: 2012
  18. POTASSIUM [Concomitant]
     Active Substance: POTASSIUM
  19. NEXAVAR [Suspect]
     Active Substance: SORAFENIB
     Indication: THYROID CANCER
     Dosage: 200 MG, BID
     Route: 048
  20. DIOVAN [Concomitant]
     Active Substance: VALSARTAN
  21. NEXAVAR [Suspect]
     Active Substance: SORAFENIB
     Indication: THYROID CANCER
     Dosage: 2 TABLETS DAILY
     Route: 048
  22. ESOMEPRAZOLE [Concomitant]
     Active Substance: ESOMEPRAZOLE
  23. GLIMEPIRIDE. [Concomitant]
     Active Substance: GLIMEPIRIDE
  24. KOMBIGLYZE XR [Concomitant]
     Active Substance: METFORMIN HYDROCHLORIDE\SAXAGLIPTIN HYDROCHLORIDE

REACTIONS (18)
  - Gait inability [Unknown]
  - Impaired healing [Not Recovered/Not Resolved]
  - Skin lesion [Not Recovered/Not Resolved]
  - Acne [None]
  - Off label use [None]
  - Pain in extremity [Not Recovered/Not Resolved]
  - Blister [Unknown]
  - Peripheral swelling [Unknown]
  - Skin fissures [Not Recovered/Not Resolved]
  - Dry skin [Not Recovered/Not Resolved]
  - Alopecia [Not Recovered/Not Resolved]
  - Pain in extremity [Recovering/Resolving]
  - Mass [Unknown]
  - Burning sensation [Unknown]
  - Fibrous histiocytoma [Recovering/Resolving]
  - Blister [Unknown]
  - Skin lesion [Unknown]
  - Skin ulcer [Recovering/Resolving]

NARRATIVE: CASE EVENT DATE: 2012
